FAERS Safety Report 12867341 (Version 3)
Quarter: 2016Q4

REPORT INFORMATION
  Report Type: Spontaneous
  Country: US (occurrence: US)
  Receive Date: 20161020
  Receipt Date: 20161207
  Transmission Date: 20170207
  Serious: Yes (Other)
  Sender: FDA-Public Use
  Company Number: US-SAOL THERAPEUTICS-2016SAO00845

PATIENT
  Age: 58 Year
  Sex: Male

DRUGS (2)
  1. TIZANIDINE. [Concomitant]
     Active Substance: TIZANIDINE
  2. LIORESAL [Suspect]
     Active Substance: BACLOFEN
     Indication: MUSCLE SPASTICITY
     Dosage: 215.1 ?G, \DAY
     Route: 037

REACTIONS (4)
  - Traumatic amputation [Recovered/Resolved]
  - Infection [Unknown]
  - Device failure [Unknown]
  - Device infusion issue [Unknown]

NARRATIVE: CASE EVENT DATE: 2016
